FAERS Safety Report 6912853-3 (Version None)
Quarter: 2010Q3

REPORT INFORMATION
  Report Type: 
  Country: None (occurrence: None)
  Receive Date: 20100806
  Receipt Date: 20090214
  Transmission Date: 20110219
  Serious: No
  Sender: FDA-Public Use
  Company Number: US-PFIZER INC-2008096323

PATIENT
  Sex: Female
  Weight: 68.9 kg

DRUGS (10)
  1. DETROL LA [Suspect]
     Indication: STRESS URINARY INCONTINENCE
     Dosage: 4MG/DAILY
     Route: 048
     Dates: start: 20081014, end: 20081111
  2. DETROL LA [Suspect]
     Indication: MICTURITION URGENCY
  3. DETROL LA [Suspect]
     Indication: POLLAKIURIA
  4. PRILOSEC [Concomitant]
  5. LOVASTATIN [Concomitant]
  6. FOLIC ACID [Concomitant]
  7. CALCIUM WITH VITAMIN D [Concomitant]
  8. MICARDIS HCT [Concomitant]
  9. ALENDRONATE SODIUM [Concomitant]
  10. ZYRTEC [Concomitant]

REACTIONS (3)
  - DYSPHONIA [None]
  - GASTROOESOPHAGEAL REFLUX DISEASE [None]
  - RHINORRHOEA [None]
